FAERS Safety Report 12459402 (Version 2)
Quarter: 2016Q3

REPORT INFORMATION
  Report Type: Spontaneous
  Country: GE (occurrence: GE)
  Receive Date: 20160613
  Receipt Date: 20160720
  Transmission Date: 20161109
  Serious: Yes (Death, Hospitalization, Other)
  Sender: FDA-Public Use
  Company Number: GE-JNJFOC-20160607636

PATIENT
  Age: 53 Year
  Sex: Male
  Weight: 65 kg

DRUGS (14)
  1. CLOFAZIMINE [Suspect]
     Active Substance: CLOFAZIMINE
     Indication: PULMONARY TUBERCULOSIS
     Route: 065
     Dates: start: 20151007
  2. LINEZOLID. [Suspect]
     Active Substance: LINEZOLID
     Indication: PULMONARY TUBERCULOSIS
     Route: 048
     Dates: start: 20151007
  3. CAPREOMYCIN [Suspect]
     Active Substance: CAPREOMYCIN
     Indication: PULMONARY TUBERCULOSIS
     Route: 030
     Dates: start: 20151007
  4. PARA-AMINOSALICYLIC ACID [Suspect]
     Active Substance: AMINOSALICYLIC ACID
     Indication: PULMONARY TUBERCULOSIS
     Route: 065
     Dates: start: 20151007, end: 20160104
  5. NOVOCAINE [Concomitant]
     Active Substance: PROCAINE
     Route: 030
     Dates: start: 20160212
  6. CYCLOSERINE. [Suspect]
     Active Substance: CYCLOSERINE
     Indication: PULMONARY TUBERCULOSIS
     Route: 065
     Dates: start: 20151007
  7. DEXAMETHASONE. [Concomitant]
     Active Substance: DEXAMETHASONE
     Route: 030
     Dates: start: 20160212
  8. FLUTICASONE W/SALMETEROL [Concomitant]
     Active Substance: FLUTICASONE PROPIONATE\SALMETEROL XINAFOATE
     Route: 065
  9. SULFOCAMPHOCAIN [Concomitant]
     Route: 030
     Dates: start: 20160212
  10. MELDONIUM [Concomitant]
     Active Substance: MELDONIUM
     Route: 048
     Dates: start: 20160212
  11. BEDAQUILINE [Suspect]
     Active Substance: BEDAQUILINE
     Indication: PULMONARY TUBERCULOSIS
     Route: 048
     Dates: start: 20151007
  12. LEVOFLOXACIN. [Suspect]
     Active Substance: LEVOFLOXACIN
     Indication: PULMONARY TUBERCULOSIS
     Route: 048
     Dates: start: 20151007
  13. IPRATROPIUM BROMIDE. [Concomitant]
     Active Substance: IPRATROPIUM BROMIDE
     Route: 065
  14. AMINOPHYLIN [Concomitant]
     Route: 030
     Dates: start: 20160211

REACTIONS (2)
  - Retinopathy [Unknown]
  - Respiratory failure [Fatal]

NARRATIVE: CASE EVENT DATE: 20151016
